FAERS Safety Report 12898354 (Version 1)
Quarter: 2016Q4

REPORT INFORMATION
  Report Type: Spontaneous
  Country: US (occurrence: US)
  Receive Date: 20161031
  Receipt Date: 20161031
  Transmission Date: 20170207
  Serious: No
  Sender: FDA-Public Use
  Company Number: US-009507513-1610USA012303

PATIENT
  Sex: Female
  Weight: 52.61 kg

DRUGS (1)
  1. IMPLANON [Suspect]
     Active Substance: ETONOGESTREL
     Indication: CONTRACEPTION
     Dosage: 3 YEARS, LEFT ARM
     Route: 059
     Dates: start: 20100927, end: 201311

REACTIONS (3)
  - Menstruation irregular [Not Recovered/Not Resolved]
  - Reproductive tract disorder [Not Recovered/Not Resolved]
  - Adverse event [Unknown]
